FAERS Safety Report 20172356 (Version 4)
Quarter: 2021Q4

REPORT INFORMATION
  Report Type: Report from Study
  Country: NL (occurrence: NL)
  Receive Date: 20211210
  Receipt Date: 20211224
  Transmission Date: 20220303
  Serious: Yes (Other)
  Sender: FDA-Public Use
  Company Number: NL-ABBVIE-21K-114-4090230-00

PATIENT
  Age: 76 Year
  Sex: Male

DRUGS (3)
  1. CARBIDOPA\LEVODOPA [Suspect]
     Active Substance: CARBIDOPA\LEVODOPA
     Indication: Parkinson^s disease
     Route: 050
     Dates: start: 20210906
  2. CARBIDOPA\LEVODOPA [Suspect]
     Active Substance: CARBIDOPA\LEVODOPA
     Dosage: MD: 13.0 ML, CD: 3.6  ML/H, ED: 2.0 ML
     Route: 050
  3. CARBIDOPA\LEVODOPA [Suspect]
     Active Substance: CARBIDOPA\LEVODOPA
     Dosage: MD: 16.0 ML, CD: 3.9 ML/H, ED: 2.0 ML
     Route: 050

REACTIONS (21)
  - Heart rate decreased [Unknown]
  - Hypotension [Not Recovered/Not Resolved]
  - Fall [Recovered/Resolved]
  - Transient ischaemic attack [Not Recovered/Not Resolved]
  - Impaired quality of life [Unknown]
  - Abnormal dreams [Not Recovered/Not Resolved]
  - Insomnia [Recovered/Resolved]
  - Medical device site discomfort [Recovered/Resolved]
  - Hallucination [Recovering/Resolving]
  - Middle insomnia [Not Recovered/Not Resolved]
  - Tension [Not Recovered/Not Resolved]
  - Stress [Not Recovered/Not Resolved]
  - On and off phenomenon [Unknown]
  - Stoma site erythema [Recovered/Resolved]
  - Stoma site hypergranulation [Recovered/Resolved]
  - Stoma site erythema [Not Recovered/Not Resolved]
  - Device occlusion [Not Recovered/Not Resolved]
  - Salivary hypersecretion [Not Recovered/Not Resolved]
  - Fear of disease [Not Recovered/Not Resolved]
  - Device loosening [Unknown]
  - Speech disorder [Not Recovered/Not Resolved]

NARRATIVE: CASE EVENT DATE: 20210101
